FAERS Safety Report 6938019-9 (Version None)
Quarter: 2010Q3

REPORT INFORMATION
  Report Type: 
  Country: None (occurrence: None)
  Receive Date: 20100824
  Receipt Date: 20100813
  Transmission Date: 20110219
  Serious: Yes (Hospitalization)
  Sender: FDA-Public Use
  Company Number: US-US-EMD SERONO, INC.-7003919

PATIENT
  Sex: Female
  Weight: 47 kg

DRUGS (3)
  1. REBIF [Suspect]
     Indication: MULTIPLE SCLEROSIS
     Route: 058
     Dates: start: 20070910, end: 20100201
  2. REBIF [Suspect]
     Route: 058
     Dates: start: 20100101, end: 20100413
  3. REBIF [Suspect]
     Route: 058
     Dates: start: 20100101, end: 20100629

REACTIONS (10)
  - APPENDICITIS [None]
  - COLONIC POLYP [None]
  - DIARRHOEA [None]
  - DYSARTHRIA [None]
  - EXPIRED DRUG ADMINISTERED [None]
  - FATIGUE [None]
  - INJECTION SITE HAEMATOMA [None]
  - PROCEDURAL PAIN [None]
  - VITAMIN D DECREASED [None]
  - WEIGHT DECREASED [None]
